FAERS Safety Report 19520282 (Version 1)
Quarter: 2021Q3

REPORT INFORMATION
  Report Type: Other
  Country: SE (occurrence: SE)
  Receive Date: 20210712
  Receipt Date: 20210712
  Transmission Date: 20211014
  Serious: Yes (Other)
  Sender: FDA-Public Use
  Company Number: SE-ROCHE-2864551

PATIENT

DRUGS (12)
  1. RITUXIMAB. [Suspect]
     Active Substance: RITUXIMAB
     Indication: ACUTE LEUKAEMIA
  2. THIOTEPA. [Suspect]
     Active Substance: THIOTEPA
     Indication: ACUTE LEUKAEMIA
     Route: 065
  3. ETOPOSIDE. [Suspect]
     Active Substance: ETOPOSIDE
     Indication: ACUTE LEUKAEMIA
     Route: 065
  4. CYCLOPHOSPHAMIDE. [Suspect]
     Active Substance: CYCLOPHOSPHAMIDE
     Indication: ACUTE LEUKAEMIA
     Route: 065
  5. MELPHALAN. [Suspect]
     Active Substance: MELPHALAN
     Indication: ACUTE LEUKAEMIA
     Route: 065
  6. RITUXIMAB. [Suspect]
     Active Substance: RITUXIMAB
     Indication: PROPHYLAXIS AGAINST TRANSPLANT REJECTION
     Route: 041
  7. MYCOPHENOLATE MOFETIL. [Suspect]
     Active Substance: MYCOPHENOLATE MOFETIL
     Indication: PROPHYLAXIS AGAINST TRANSPLANT REJECTION
     Route: 065
  8. CLOFARABINE. [Suspect]
     Active Substance: CLOFARABINE
     Route: 065
  9. MYCOPHENOLATE MOFETIL. [Suspect]
     Active Substance: MYCOPHENOLATE MOFETIL
     Indication: ACUTE LEUKAEMIA
  10. CLOFARABINE. [Suspect]
     Active Substance: CLOFARABINE
     Indication: ACUTE LEUKAEMIA
     Route: 065
  11. FLUDARABINE [Suspect]
     Active Substance: FLUDARABINE PHOSPHATE
     Indication: ACUTE LEUKAEMIA
     Route: 065
  12. ANTITHYMOCYTE IMMUNOGLOBULIN [Suspect]
     Active Substance: THYMOCYTE IMMUNE GLOBULIN NOS
     Indication: ACUTE LEUKAEMIA
     Route: 065

REACTIONS (15)
  - Cytomegalovirus colitis [Unknown]
  - Mucosal inflammation [Unknown]
  - Enterococcal infection [Unknown]
  - Aspartate aminotransferase increased [Unknown]
  - Escherichia sepsis [Unknown]
  - Cystitis haemorrhagic [Unknown]
  - Cytomegalovirus chorioretinitis [Unknown]
  - Cytomegalovirus infection [Unknown]
  - Gastroenteritis rotavirus [Unknown]
  - Alanine aminotransferase increased [Unknown]
  - Cerebral fungal infection [Unknown]
  - Pulmonary mucormycosis [Unknown]
  - Staphylococcal sepsis [Unknown]
  - Hyperbilirubinaemia [Unknown]
  - Cerebral venous sinus thrombosis [Unknown]
